FAERS Safety Report 7681313-7 (Version None)
Quarter: 2011Q3

REPORT INFORMATION
  Report Type: 
  Country: None (occurrence: None)
  Receive Date: 20110812
  Receipt Date: 20110804
  Transmission Date: 20111222
  Serious: Yes (Other)
  Sender: FDA-Public Use
  Company Number: US-BAYER-2011-002264

PATIENT
  Age: 32 Year
  Sex: Female
  Weight: 59.864 kg

DRUGS (1)
  1. YAZ [Suspect]
     Dates: start: 20080901, end: 20090301

REACTIONS (5)
  - CHOLECYSTECTOMY [None]
  - WEIGHT DECREASED [None]
  - GASTRIC DISORDER [None]
  - PAIN [None]
  - GALLBLADDER DISORDER [None]
